FAERS Safety Report 9487289 (Version 1)
Quarter: 2013Q3

REPORT INFORMATION
  Report Type: Report from Study
  Country: US (occurrence: US)
  Receive Date: 20130829
  Receipt Date: 20130829
  Transmission Date: 20140515
  Serious: Yes (Other)
  Sender: FDA-Public Use
  Company Number: US-BAXTER-2013BAX034072

PATIENT
  Sex: Female

DRUGS (1)
  1. ARALAST NP [Suspect]
     Indication: PRODUCT USED FOR UNKNOWN INDICATION
     Route: 042
     Dates: end: 201211

REACTIONS (4)
  - Nail discolouration [Recovered/Resolved]
  - Cholecystitis [Recovered/Resolved]
  - Pancreatitis [Recovered/Resolved]
  - Dyspnoea [Recovered/Resolved]
